FAERS Safety Report 17542753 (Version 1)
Quarter: 2020Q1

REPORT INFORMATION
  Report Type: Spontaneous
  Country: US (occurrence: US)
  Receive Date: 20200315
  Receipt Date: 20200315
  Transmission Date: 20200409
  Serious: No
  Sender: FDA-Public Use
  Company Number: US-009507513-2003USA004483

PATIENT

DRUGS (1)
  1. DULERA [Suspect]
     Active Substance: FORMOTEROL FUMARATE DIHYDRATE\MOMETASONE FUROATE
     Dosage: 2 PUFFS ORALLY DAILY
     Route: 055

REACTIONS (4)
  - Poor quality device used [Unknown]
  - Inappropriate schedule of product administration [Unknown]
  - Product quality issue [Unknown]
  - No adverse event [Unknown]
